FAERS Safety Report 11587222 (Version 1)
Quarter: 2015Q3

REPORT INFORMATION
  Report Type: Spontaneous
  Country: US (occurrence: US)
  Receive Date: 20150916
  Receipt Date: 20150916
  Transmission Date: 20151125
  Serious: No
  Sender: FDA-Public Use
  Company Number: US-ELI_LILLY_AND_COMPANY-US200802001873

PATIENT
  Sex: Female

DRUGS (6)
  1. FORTEO [Suspect]
     Active Substance: TERIPARATIDE
     Indication: OSTEOPOROSIS
     Dosage: UNK, DAILY (1/D)
     Dates: start: 20080125
  2. FORTEO [Suspect]
     Active Substance: TERIPARATIDE
     Dates: start: 20080219
  3. FORTEO [Suspect]
     Active Substance: TERIPARATIDE
     Dosage: UNK, EACH EVENING
     Dates: start: 2008, end: 20080211
  4. ZOCOR [Concomitant]
     Active Substance: SIMVASTATIN
  5. LOTRONEX [Concomitant]
     Active Substance: ALOSETRON HYDROCHLORIDE
  6. CALCIUM [Concomitant]
     Active Substance: CALCIUM

REACTIONS (2)
  - Cardiac flutter [Recovered/Resolved]
  - Influenza like illness [Recovering/Resolving]

NARRATIVE: CASE EVENT DATE: 20080125
